FAERS Safety Report 5612168-X (Version None)
Quarter: 2008Q1

REPORT INFORMATION
  Report Type: 
  Country: None (occurrence: None)
  Receive Date: 20080131
  Receipt Date: 20080131
  Transmission Date: 20080703
  Serious: No
  Sender: FDA-Public Use
  Company Number: None

PATIENT
  Sex: Male
  Weight: 20 kg

DRUGS (1)
  1. ETHANOL    98%    AMERICAN REGENT INC [Suspect]
     Indication: CENTRAL LINE INFECTION
     Dosage: 2 ML OF 70%  DAILY  IV
     Route: 042
     Dates: start: 20080129, end: 20080129

REACTIONS (4)
  - BONE PAIN [None]
  - LYMPHADENITIS [None]
  - NECK PAIN [None]
  - PAIN IN EXTREMITY [None]
